FAERS Safety Report 7360907-2 (Version None)
Quarter: 2011Q1

REPORT INFORMATION
  Report Type: 
  Country: None (occurrence: None)
  Receive Date: 20110318
  Receipt Date: 20101110
  Transmission Date: 20110831
  Serious: Yes (Hospitalization, Other)
  Sender: FDA-Public Use
  Company Number: US-BAYER-201038114NA

PATIENT
  Sex: Female
  Weight: 91 kg

DRUGS (8)
  1. OVCON-35 [Concomitant]
     Dosage: UNK
     Dates: start: 20050501
  2. IBUPROFEN [Concomitant]
     Route: 048
  3. ADIPEX [Concomitant]
     Dosage: UNK
     Route: 048
     Dates: start: 20050501
  4. YASMIN [Suspect]
     Indication: ACNE
     Dosage: UNK UNK, QD
     Route: 048
     Dates: start: 20080101, end: 20090101
  5. METFORMIN HCL [Concomitant]
     Dosage: UNK
     Route: 048
     Dates: start: 20050101
  6. YAZ [Suspect]
     Indication: ACNE
     Dosage: UNK UNK, QD
     Route: 048
     Dates: start: 20050101
  7. YAZ [Suspect]
     Dosage: UNK, QD
     Route: 048
     Dates: start: 20080101
  8. SPIRONOLACTONE [Concomitant]
     Indication: POLYCYSTIC OVARIES
     Dosage: UNK
     Route: 048
     Dates: start: 20050101

REACTIONS (5)
  - CHOLECYSTITIS CHRONIC [None]
  - INJURY [None]
  - CHOLELITHIASIS [None]
  - CHOLECYSTITIS ACUTE [None]
  - ABDOMINAL PAIN UPPER [None]
